FAERS Safety Report 17858755 (Version 1)
Quarter: 2020Q2

REPORT INFORMATION
  Report Type: Report from Study
  Country: None (occurrence: US)
  Receive Date: 20200604
  Receipt Date: 20200604
  Transmission Date: 20200714
  Serious: No
  Sender: FDA-Public Use
  Company Number: US-US WORLDMEDS, LLC-USW202002-000390

PATIENT
  Sex: Male
  Weight: 68.03 kg

DRUGS (3)
  1. APOKYN [Suspect]
     Active Substance: APOMORPHINE HYDROCHLORIDE
     Indication: PARKINSON^S DISEASE
     Route: 058
     Dates: start: 20190823
  2. CARBIDOPA LEVODOPA [Concomitant]
     Active Substance: CARBIDOPA\LEVODOPA
     Dosage: UNKNOWN
  3. CARBIDOPA LEVODOPA [Concomitant]
     Active Substance: CARBIDOPA\LEVODOPA
     Dosage: UNKNOWN

REACTIONS (10)
  - Mood swings [Recovering/Resolving]
  - Pollakiuria [Recovering/Resolving]
  - Parkinson^s disease [Recovering/Resolving]
  - Dementia [Recovering/Resolving]
  - Hallucination [Recovering/Resolving]
  - Binge eating [Recovering/Resolving]
  - Dyskinesia [Recovering/Resolving]
  - Prostatomegaly [Recovering/Resolving]
  - Therapy non-responder [Unknown]
  - Nausea [Recovering/Resolving]
